FAERS Safety Report 4457127-8 (Version None)
Quarter: 2004Q3

REPORT INFORMATION
  Report Type: 
  Country: None (occurrence: None)
  Receive Date: 20040921
  Receipt Date: 20040908
  Transmission Date: 20050211
  Serious: Yes (Hospitalization)
  Sender: FDA-Public Use
  Company Number: 04P-163-0272726-00

PATIENT
  Age: 54 Year
  Sex: Female

DRUGS (8)
  1. HUMIRA [Suspect]
     Indication: RHEUMATOID ARTHRITIS
     Dosage: SEE IMAGE, SUBCUTANEOUS
     Route: 058
     Dates: start: 20030101, end: 20040401
  2. HUMIRA [Suspect]
     Indication: RHEUMATOID ARTHRITIS
     Dosage: SEE IMAGE, SUBCUTANEOUS
     Route: 058
     Dates: start: 20040601
  3. BUPROPION HYDROCHLORIDE [Concomitant]
  4. FENTANYL [Concomitant]
  5. ESOMEPRAZOLE [Concomitant]
  6. PREDNISONE [Concomitant]
  7. VICODIN [Concomitant]
  8. CALCIUM [Concomitant]

REACTIONS (2)
  - GALLBLADDER OPERATION [None]
  - RED BLOOD CELL SEDIMENTATION RATE INCREASED [None]
